FAERS Safety Report 4933082-9 (Version None)
Quarter: 2006Q1

REPORT INFORMATION
  Report Type: 
  Country: None (occurrence: None)
  Receive Date: 20060301
  Receipt Date: 20050912
  Transmission Date: 20060701
  Serious: Yes (Death)
  Sender: FDA-Public Use
  Company Number: 2005US-01663

PATIENT
  Sex: Male

DRUGS (5)
  1. CEPHALEXIN [Suspect]
  2. ALLOPURINOL [Suspect]
  3. CIPRO XR [Suspect]
  4. LEVAQUIN [Suspect]
  5. ZOSYN [Suspect]

REACTIONS (1)
  - STEVENS-JOHNSON SYNDROME [None]
